FAERS Safety Report 5525588-9 (Version None)
Quarter: 2007Q4

REPORT INFORMATION
  Report Type: 
  Country: None (occurrence: None)
  Receive Date: 20071126
  Receipt Date: 20071116
  Transmission Date: 20080405
  Serious: Yes (Life-Threatening, Hospitalization)
  Sender: FDA-Public Use
  Company Number: D0054699A

PATIENT
  Age: 62 Year
  Sex: Male
  Weight: 114 kg

DRUGS (3)
  1. AVANDAMET [Suspect]
     Dosage: 1004MG TWICE PER DAY
     Route: 048
     Dates: start: 20030101
  2. GABAPENTIN [Concomitant]
     Indication: POLYNEUROPATHY
     Dosage: 600MG THREE TIMES PER DAY
     Route: 048
  3. SIMVASTATIN [Concomitant]
     Dosage: 20MG PER DAY
     Route: 048

REACTIONS (9)
  - CARDIAC ARREST [None]
  - DIARRHOEA [None]
  - HAEMODIALYSIS [None]
  - HYPERKALAEMIA [None]
  - INTUBATION [None]
  - LACTIC ACIDOSIS [None]
  - OLIGURIA [None]
  - RENAL FAILURE ACUTE [None]
  - RESUSCITATION [None]
